FAERS Safety Report 5836244-1 (Version None)
Quarter: 2008Q3

REPORT INFORMATION
  Report Type: 
  Country: None (occurrence: None)
  Receive Date: 20080806
  Receipt Date: 20080806
  Transmission Date: 20090109
  Serious: Yes (Disabling)
  Sender: FDA-Public Use
  Company Number: None

PATIENT
  Age: 27 Year
  Sex: Male
  Weight: 104.3273 kg

DRUGS (2)
  1. CREST PRO HEALTH TOOTHPASTE CREST / PROCTOR GAMBLE [Suspect]
  2. CREST PRO HEALTH MOUTHWASH CREST / PROCTOR GAMBLE [Suspect]

REACTIONS (2)
  - PHARMACEUTICAL PRODUCT COMPLAINT [None]
  - TOOTH DISCOLOURATION [None]
